FAERS Safety Report 8504033-5 (Version None)
Quarter: 2012Q3

REPORT INFORMATION
  Report Type: 
  Country: None (occurrence: None)
  Receive Date: 20120711
  Receipt Date: 20120705
  Transmission Date: 20120928
  Serious: Yes (Death)
  Sender: FDA-Public Use
  Company Number: JP-ELI_LILLY_AND_COMPANY-JP201206005794

PATIENT
  Sex: Male
  Weight: 53 kg

DRUGS (12)
  1. ACETAMINOPHEN [Concomitant]
     Dosage: 400 MG, TID
     Dates: start: 20120301
  2. AMITRIPTYLINE HCL [Concomitant]
     Dosage: 10 MG, QD
     Dates: start: 20120301
  3. GRANISETRON [Concomitant]
     Dosage: 3 MG, UNK
     Dates: start: 20120416
  4. MAGNESIUM OXIDE [Concomitant]
     Dosage: 330 MG, TID
     Dates: start: 20120301
  5. FRESMIN S [Concomitant]
     Dosage: 1000 UG, UNK
     Route: 030
     Dates: start: 20120409
  6. ISOTONIC SODIUM CHLORIDE SOLUTION [Concomitant]
     Dosage: UNK
     Dates: start: 20120416
  7. PANVITAN [Concomitant]
     Dosage: 1 G, QD
     Dates: start: 20120301
  8. OXYCONTIN [Concomitant]
     Dosage: 5 MG, BID
     Dates: start: 20120229, end: 20120229
  9. ALIMTA [Suspect]
     Indication: NON-SMALL CELL LUNG CANCER STAGE IV
     Dosage: 600 MG, UNK
     Route: 042
     Dates: start: 20120416, end: 20120416
  10. DEXAMETHASONE SODIUM PHOSPHATE [Concomitant]
     Dosage: 6.6 MG, UNK
     Dates: start: 20120416
  11. RABEPRAZOLE SODIUM [Concomitant]
     Dosage: 10 MG, QD
     Dates: start: 20120301
  12. ADONA [Concomitant]
     Dosage: 30 MG, TID
     Route: 048
     Dates: start: 20120301

REACTIONS (3)
  - PANCYTOPENIA [None]
  - CEREBRAL HAEMORRHAGE [None]
  - RENAL IMPAIRMENT [None]
